FAERS Safety Report 25818339 (Version 1)
Quarter: 2025Q3

REPORT INFORMATION
  Report Type: Spontaneous
  Country: US (occurrence: None)
  Receive Date: 20250918
  Receipt Date: 20250918
  Transmission Date: 20251021
  Serious: Yes (Hospitalization)
  Sender: FDA-CTU
  Company Number: None

PATIENT
  Sex: Female

DRUGS (10)
  1. RINVOQ [Suspect]
     Active Substance: UPADACITINIB
     Indication: Dermatitis atopic
     Route: 048
     Dates: start: 20250823
  2. ADVAIR HFA AER 45/21 [Concomitant]
  3. ATORVASTATIN TAB 10MG [Concomitant]
  4. CELECOXIB  CAP 100MG [Concomitant]
  5. CETIRIZINE HCL [Concomitant]
     Active Substance: CETIRIZINE HYDROCHLORIDE
  6. ELIDEL  CRE 1% [Concomitant]
  7. FLUTICASONE [Concomitant]
     Active Substance: FLUTICASONE
  8. PULMICORT  INH 90MCG [Concomitant]
  9. SERTRALINE TAB 50MG [Concomitant]
  10. VALACYCLOVIR [Concomitant]
     Active Substance: VALACYCLOVIR HYDROCHLORIDE

REACTIONS (3)
  - Therapeutic response changed [None]
  - Therapy interrupted [None]
  - Sleep disorder [None]
